FAERS Safety Report 8011284-5 (Version None)
Quarter: 2011Q4

REPORT INFORMATION
  Report Type: 
  Country: None (occurrence: None)
  Receive Date: 20111227
  Receipt Date: 20111227
  Transmission Date: 20120403
  Serious: Yes (Hospitalization)
  Sender: FDA-Public Use
  Company Number: None

PATIENT
  Age: 28 Year
  Sex: Female
  Weight: 59.42 kg

DRUGS (1)
  1. NATAZIA [Suspect]
     Dosage: 1
     Route: 048
     Dates: start: 20110602, end: 20111223

REACTIONS (4)
  - HYPOAESTHESIA [None]
  - HYPERTENSION [None]
  - DIZZINESS [None]
  - HEADACHE [None]
